FAERS Safety Report 22917145 (Version 7)
Quarter: 2023Q4

REPORT INFORMATION
  Report Type: Report from Study
  Country: ES (occurrence: ES)
  Receive Date: 20230907
  Receipt Date: 20231024
  Transmission Date: 20240109
  Serious: Yes (Life-Threatening, Hospitalization, Other)
  Sender: FDA-Public Use
  Company Number: ES-VERTEX PHARMACEUTICALS-2023-013072

PATIENT
  Age: 56 Year
  Sex: Female
  Weight: 72 kg

DRUGS (11)
  1. ELEXACAFTOR\IVACAFTOR\TEZACAFTOR [Suspect]
     Active Substance: ELEXACAFTOR\IVACAFTOR\TEZACAFTOR
     Indication: Cystic fibrosis
     Dosage: UNK
     Route: 048
     Dates: start: 20230508, end: 20230829
  2. FLUIDASA [Concomitant]
     Indication: Upper respiratory tract infection
     Dosage: UNK
     Dates: start: 20230731, end: 20230804
  3. ACETAMINOPHEN\ASCORBIC ACID\CODEINE [Concomitant]
     Active Substance: ACETAMINOPHEN\ASCORBIC ACID\CODEINE
     Indication: Upper respiratory tract infection
     Dosage: UNK
     Dates: start: 20230731, end: 20230804
  4. FLUTICASONE FUROATE\VILANTEROL TRIFENATATE [Concomitant]
     Active Substance: FLUTICASONE FUROATE\VILANTEROL TRIFENATATE
     Indication: Prophylaxis
     Dosage: 1 INHALATION PER DAY
  5. EBASTINE [Concomitant]
     Active Substance: EBASTINE
     Indication: Rhinitis
     Dosage: 20 MILLIGRAM, QD
  6. BUDESONIDE [Concomitant]
     Active Substance: BUDESONIDE
     Dosage: 100 MICROGRAM, ONE PUFF
     Route: 045
  7. OMEPRAZOLE [Concomitant]
     Active Substance: OMEPRAZOLE
     Indication: Prophylaxis
     Dosage: 20 MG PER DAY
  8. AZITHROMYCIN [Concomitant]
     Active Substance: AZITHROMYCIN
     Indication: Chronic respiratory disease
     Dosage: 500 MG, EVERY WED, THUR, FRI
  9. PRIMPERAN [Concomitant]
     Active Substance: METOCLOPRAMIDE HYDROCHLORIDE
     Dosage: 1 TAB EVERY 8 HRS
  10. METAMIZOLE [Concomitant]
     Active Substance: METAMIZOLE
     Indication: Abdominal pain
     Dosage: 575 MG
     Dates: start: 20230726, end: 20230810
  11. METAMIZOLE [Concomitant]
     Active Substance: METAMIZOLE
     Indication: Hepatitis toxic
     Dosage: UNK
     Dates: start: 2023, end: 20230907

REACTIONS (1)
  - Hepatitis toxic [Recovered/Resolved]

NARRATIVE: CASE EVENT DATE: 20230830
